FAERS Safety Report 11197789 (Version 1)
Quarter: 2015Q2

REPORT INFORMATION
  Report Type: Spontaneous
  Country: US (occurrence: US)
  Receive Date: 20150617
  Receipt Date: 20150617
  Transmission Date: 20150821
  Serious: No
  Sender: FDA-Public Use
  Company Number: US-TAKEDA-2014TUS008218

PATIENT
  Age: 62 Year
  Sex: Male
  Weight: 77.55 kg

DRUGS (1)
  1. ULORIC [Suspect]
     Active Substance: FEBUXOSTAT
     Indication: GOUT
     Dosage: 40 MG, QD
     Route: 048
     Dates: start: 20140820, end: 20140822

REACTIONS (4)
  - Oedema peripheral [Recovered/Resolved]
  - Local swelling [Recovered/Resolved]
  - Skin discolouration [Recovered/Resolved]
  - Feeling hot [Recovered/Resolved]

NARRATIVE: CASE EVENT DATE: 20140820
